FAERS Safety Report 4551646-1 (Version None)
Quarter: 2005Q1

REPORT INFORMATION
  Report Type: 
  Country: None (occurrence: None)
  Receive Date: 20050112
  Receipt Date: 20050107
  Transmission Date: 20050727
  Serious: Yes (Hospitalization)
  Sender: FDA-Public Use
  Company Number: CERZ-10756

PATIENT
  Age: 40 Year
  Sex: Male
  Weight: 76.9 kg

DRUGS (1)
  1. CEREZYME [Suspect]
     Indication: GAUCHER'S DISEASE
     Dates: start: 19940901

REACTIONS (7)
  - ARTHRALGIA [None]
  - CELLULITIS [None]
  - ERYTHEMA [None]
  - EYELID OEDEMA [None]
  - JOINT SWELLING [None]
  - OEDEMA PERIPHERAL [None]
  - URTICARIA [None]
